FAERS Safety Report 9500585 (Version 2)
Quarter: 2013Q3

REPORT INFORMATION
  Report Type: Spontaneous
  Country: US (occurrence: US)
  Receive Date: 20130905
  Receipt Date: 20130913
  Transmission Date: 20140515
  Serious: No
  Sender: FDA-Public Use
  Company Number: US-009507513-1309USA001949

PATIENT
  Age: 73 Year
  Sex: Male

DRUGS (6)
  1. PROSCAR [Suspect]
     Indication: PROSTATOMEGALY
     Dosage: 5 MG, QD
     Route: 048
     Dates: start: 201301, end: 201307
  2. FLOMAX (TAMSULOSIN HYDROCHLORIDE) [Concomitant]
  3. CIALIS [Concomitant]
  4. TRADJENTA [Concomitant]
  5. GLYBURIDE [Concomitant]
  6. METFORMIN [Concomitant]

REACTIONS (2)
  - Breast mass [Not Recovered/Not Resolved]
  - Breast enlargement [Not Recovered/Not Resolved]
